FAERS Safety Report 6466294-6 (Version None)
Quarter: 2009Q4

REPORT INFORMATION
  Report Type: 
  Country: None (occurrence: None)
  Receive Date: 20091202
  Receipt Date: 20091126
  Transmission Date: 20100525
  Serious: Yes (Life-Threatening, Hospitalization, Other)
  Sender: FDA-Public Use
  Company Number: PHNR2004AU00757

PATIENT
  Sex: Male

DRUGS (16)
  1. CLOZARIL [Suspect]
     Indication: SCHIZOPHRENIA, PARANOID TYPE
     Dosage: 200 - 800 MG/DAY
     Dates: start: 19941116
  2. CLOZARIL [Suspect]
     Dosage: 300 MG, UNK
     Dates: start: 20080701
  3. VALPROATE SODIUM [Concomitant]
     Dosage: 500 MG, BID
  4. ISOSORBIDE [Concomitant]
  5. ATENOLOL [Concomitant]
  6. ASPIRIN [Concomitant]
     Dosage: 100 MG MANE
  7. FLUOXETINE [Concomitant]
     Dosage: 20 MG DAILY
  8. LIPITOR [Concomitant]
  9. FRUSEMIDE [Concomitant]
     Dosage: 40 MG, BID
  10. COLOXYL WITH SENNA [Concomitant]
     Dosage: 2 TABS BD
  11. CALCIUM [Concomitant]
     Dosage: 1200 MG, BID
  12. BISOPROLOL [Concomitant]
     Dosage: 2.5 MG MANE
  13. CLOPIDOGREL [Concomitant]
     Dosage: 75 MG MANE
  14. IRON [Concomitant]
     Dosage: 2 AT LUNCH TIME
  15. ATORVASTATIN [Concomitant]
     Dosage: 40 MG AT NIGHT
  16. BENZTROPEINE [Concomitant]
     Dosage: 2 MG, UNK

REACTIONS (4)
  - HEPATIC FAILURE [None]
  - PLEURAL EFFUSION [None]
  - PYOTHORAX [None]
  - RENAL FAILURE [None]
